FAERS Safety Report 12003612 (Version 6)
Quarter: 2019Q3

REPORT INFORMATION
  Report Type: Report from Study
  Country: BR (occurrence: BR)
  Receive Date: 20160204
  Receipt Date: 20190817
  Transmission Date: 20191004
  Serious: Yes (Hospitalization)
  Sender: FDA-Public Use
  Company Number: BR-EMD SERONO-8065616

PATIENT
  Sex: Female
  Weight: 74 kg

DRUGS (2)
  1. REBIF [Suspect]
     Active Substance: INTERFERON BETA-1A
     Route: 058
     Dates: start: 20150131
  2. REBIF [Suspect]
     Active Substance: INTERFERON BETA-1A
     Indication: MULTIPLE SCLEROSIS
     Dosage: FULL SYRINGE
     Route: 058
     Dates: start: 1995

REACTIONS (11)
  - Chills [Not Recovered/Not Resolved]
  - Injection site pain [Unknown]
  - Headache [Not Recovered/Not Resolved]
  - Pyrexia [Unknown]
  - Injection site discolouration [Unknown]
  - Wrong technique in product usage process [Unknown]
  - Tremor [Not Recovered/Not Resolved]
  - Lack of injection site rotation [Unknown]
  - Injection site bruising [Not Recovered/Not Resolved]
  - Injection site erythema [Not Recovered/Not Resolved]
  - Injection site discomfort [Unknown]

NARRATIVE: CASE EVENT DATE: 1995
